FAERS Safety Report 5481711-6 (Version None)
Quarter: 2007Q4

REPORT INFORMATION
  Report Type: 
  Country: None (occurrence: None)
  Receive Date: 20071010
  Receipt Date: 20071001
  Transmission Date: 20080405
  Serious: Yes (Death, Life-Threatening)
  Sender: FDA-Public Use
  Company Number: TW-SANOFI-SYNTHELABO-A01200709601

PATIENT
  Sex: Male

DRUGS (7)
  1. RANITIDINE HCL [Concomitant]
     Indication: PREMEDICATION
     Route: 042
     Dates: end: 20070821
  2. DIPHENHYDRAMINE HCL [Concomitant]
     Indication: PREMEDICATION
     Route: 042
     Dates: end: 20070821
  3. KYTRIL [Concomitant]
     Indication: PREMEDICATION
     Route: 042
     Dates: end: 20070821
  4. LEUCOVORIN [Concomitant]
     Route: 041
     Dates: start: 20070821, end: 20070822
  5. FLUOROURACIL [Concomitant]
     Indication: COLON CANCER STAGE II
     Route: 041
     Dates: start: 20070821, end: 20070822
  6. ELOXATIN [Suspect]
     Indication: COLON CANCER STAGE II
     Route: 041
     Dates: start: 20070821, end: 20070822
  7. LORAZEPAM [Concomitant]
     Indication: PREMEDICATION
     Route: 042
     Dates: end: 20070821

REACTIONS (20)
  - ALTERED STATE OF CONSCIOUSNESS [None]
  - ANAPHYLACTIC REACTION [None]
  - ASTHENIA [None]
  - BACK PAIN [None]
  - BRADYCARDIA [None]
  - CEREBRAL HAEMORRHAGE [None]
  - COMA [None]
  - DEATH [None]
  - GASTROINTESTINAL HAEMORRHAGE [None]
  - HAEMATEMESIS [None]
  - HAEMORRHAGE [None]
  - METABOLIC ACIDOSIS [None]
  - NEUTROPENIA [None]
  - PULMONARY OEDEMA [None]
  - RESPIRATORY ACIDOSIS [None]
  - SHOCK [None]
  - SOMNOLENCE [None]
  - TENDERNESS [None]
  - THROMBOCYTOPENIA [None]
  - WHEEZING [None]
